FAERS Safety Report 5901874-5 (Version None)
Quarter: 2008Q3

REPORT INFORMATION
  Report Type: 
  Country: None (occurrence: None)
  Receive Date: 20080929
  Receipt Date: 20080215
  Transmission Date: 20090109
  Serious: Yes (Hospitalization)
  Sender: FDA-Public Use
  Company Number: JP-BAYER-JP-2007-034408

PATIENT
  Age: 81 Year
  Sex: Male

DRUGS (10)
  1. FLUDARA [Suspect]
     Indication: MANTLE CELL LYMPHOMA
     Dosage: UNIT DOSE: 10 MG
     Route: 048
     Dates: start: 20070824, end: 20070827
  2. FLUDARA [Suspect]
     Route: 048
  3. FLUDARA [Suspect]
     Route: 048
  4. FLUDARA [Suspect]
     Dosage: UNIT DOSE: 10 MG
     Route: 048
     Dates: start: 20071227, end: 20071230
  5. FLUDARA [Suspect]
     Route: 048
  6. RITUXAN [Concomitant]
     Indication: MANTLE CELL LYMPHOMA
     Route: 042
     Dates: start: 20070821, end: 20070821
  7. RITUXAN [Concomitant]
  8. RITUXAN [Concomitant]
  9. RITUXAN [Concomitant]
  10. RITUXAN [Concomitant]
     Dates: start: 20071226, end: 20071226

REACTIONS (2)
  - FEBRILE NEUTROPENIA [None]
  - MALAISE [None]
